FAERS Safety Report 10667646 (Version 3)
Quarter: 2015Q1

REPORT INFORMATION
  Report Type: Report from Study
  Country: BR (occurrence: BR)
  Receive Date: 20141222
  Receipt Date: 20150109
  Transmission Date: 20150720
  Serious: Yes (Death, Hospitalization)
  Sender: FDA-Public Use
  Company Number: BR-ABBVIE-14K-020-1296237-00

PATIENT
  Age: 63 Year
  Sex: Female
  Weight: 56 kg

DRUGS (7)
  1. RANITIDINE [Concomitant]
     Active Substance: RANITIDINE\RANITIDINE HYDROCHLORIDE
     Indication: ARTHRITIS
  2. HUMIRA [Suspect]
     Active Substance: ADALIMUMAB
     Indication: RHEUMATOID ARTHRITIS
     Route: 058
     Dates: start: 20140716, end: 20141012
  3. FOLIC ACID. [Concomitant]
     Active Substance: FOLIC ACID
     Indication: ARTHRITIS
  4. UNKNOWN MEDICATIONS [Concomitant]
     Active Substance: UNSPECIFIED INGREDIENT
     Indication: HYPERTENSION
  5. METHOTREXATE [Suspect]
     Active Substance: METHOTREXATE
     Indication: ARTHRITIS
     Route: 065
  6. ARAVA [Concomitant]
     Active Substance: LEFLUNOMIDE
     Indication: ARTHRITIS
  7. UNKNOWN CORTICOIDS [Concomitant]
     Indication: ARTHRITIS

REACTIONS (8)
  - Infection [Not Recovered/Not Resolved]
  - Immunodeficiency [Unknown]
  - Asthma [Recovering/Resolving]
  - Renal failure [Fatal]
  - Urinary tract infection [Fatal]
  - Pleural effusion [Not Recovered/Not Resolved]
  - Multi-organ failure [Fatal]
  - Kidney infection [Fatal]

NARRATIVE: CASE EVENT DATE: 20140901
